FAERS Safety Report 5866444-6 (Version None)
Quarter: 2008Q3

REPORT INFORMATION
  Report Type: 
  Country: None (occurrence: None)
  Receive Date: 20080826
  Receipt Date: 20070808
  Transmission Date: 20090109
  Serious: Yes (Other)
  Sender: FDA-Public Use
  Company Number: PHEH2007US09730

PATIENT
  Age: 76 Year
  Sex: Female
  Weight: 82.1 kg

DRUGS (2)
  1. FAMVIR [Suspect]
     Indication: HERPES ZOSTER
     Dosage: 500 MG, BID, ORAL
     Route: 048
     Dates: start: 20060411, end: 20060421
  2. LYRICA [Concomitant]

REACTIONS (1)
  - HALLUCINATION [None]
